FAERS Safety Report 6294600-4 (Version None)
Quarter: 2009Q3

REPORT INFORMATION
  Report Type: 
  Country: None (occurrence: None)
  Receive Date: 20090803
  Receipt Date: 20090528
  Transmission Date: 20100115
  Serious: No
  Sender: FDA-Public Use
  Company Number: US-BAYER-200917254NA

PATIENT
  Age: 40 Year
  Sex: Female
  Weight: 51 kg

DRUGS (2)
  1. MAGNEVIST [Suspect]
     Indication: NUCLEAR MAGNETIC RESONANCE IMAGING
     Dosage: TOTAL DAILY DOSE: 10 ML  UNIT DOSE: 100 ML
     Route: 042
     Dates: start: 20090105, end: 20090105
  2. METHYLPREDNISOLONE [Concomitant]
     Indication: PREMEDICATION
     Dosage: AS USED: 32 MG

REACTIONS (5)
  - COUGH [None]
  - INJECTION SITE MASS [None]
  - INJECTION SITE PAIN [None]
  - THROAT IRRITATION [None]
  - VEIN DISORDER [None]
